FAERS Safety Report 5208001-0 (Version None)
Quarter: 2007Q1

REPORT INFORMATION
  Report Type: 
  Country: None (occurrence: None)
  Receive Date: 20070115
  Receipt Date: 20070102
  Transmission Date: 20070707
  Serious: Yes (Other)
  Sender: FDA-Public Use
  Company Number: PHRM2007FR00453

PATIENT
  Age: 42 Year
  Sex: Female

DRUGS (4)
  1. ZOMETA [Suspect]
     Indication: METASTASES TO BONE
     Route: 042
     Dates: start: 20020101, end: 20040901
  2. ENANTONE [Concomitant]
     Indication: BREAST CANCER METASTATIC
  3. ARIMIDEX [Concomitant]
  4. MAGNE B6 [Concomitant]
     Route: 048

REACTIONS (4)
  - OSTEITIS [None]
  - PAIN IN JAW [None]
  - SCINTIGRAPHY [None]
  - TOOTH EXTRACTION [None]
